FAERS Safety Report 7153247-8 (Version None)
Quarter: 2010Q4

REPORT INFORMATION
  Report Type: 
  Country: None (occurrence: None)
  Receive Date: 20101130
  Receipt Date: 20101122
  Transmission Date: 20110411
  Serious: Yes (Death)
  Sender: FDA-Public Use
  Company Number: 2010US004761

PATIENT
  Age: 66 Year
  Sex: Male

DRUGS (9)
  1. PROGRAF [Suspect]
     Indication: LIVER TRANSPLANT
     Dosage: 12 MG, UID/QD, ORAL ; 2 MG, /D, ORAL
     Route: 048
     Dates: start: 20081022
  2. PROGRAF [Suspect]
     Indication: LIVER TRANSPLANT
     Dosage: 12 MG, UID/QD, ORAL ; 2 MG, /D, ORAL
     Route: 048
     Dates: start: 20091022
  3. PREDNISONE [Concomitant]
  4. MULTIVITAMIN [Concomitant]
  5. CALCIUM (CALCIUM) [Concomitant]
  6. ACETAMINOPHEN [Concomitant]
  7. HEPATITIS B IMMUNE GLOBULIN (IMMUNOGLOBULIN ANTIHEPATITIS B) [Concomitant]
  8. PRILOSEC (OMEPRAZOLE) [Concomitant]
  9. BACTRIM DS [Concomitant]

REACTIONS (9)
  - DYSPHAGIA [None]
  - HEPATIC CANCER METASTATIC [None]
  - METASTASES TO ADRENALS [None]
  - METASTASES TO DIAPHRAGM [None]
  - METASTASES TO KIDNEY [None]
  - METASTASES TO LYMPH NODES [None]
  - METASTASES TO PLEURA [None]
  - ONCOLOGIC COMPLICATION [None]
  - RECURRENT CANCER [None]
